FAERS Safety Report 4492388-0 (Version None)
Quarter: 2004Q4

REPORT INFORMATION
  Report Type: 
  Country: None (occurrence: None)
  Receive Date: 20041101
  Receipt Date: 20041101
  Transmission Date: 20050328
  Serious: Yes (Life-Threatening, Hospitalization)
  Sender: FDA-Public Use
  Company Number: None

PATIENT
  Age: 50 Year
  Sex: Female
  Weight: 77.5651 kg

DRUGS (3)
  1. VIOXX [Suspect]
     Indication: ARTHRITIS
     Dosage: 1 X DAILY
     Dates: start: 20020905, end: 20040905
  2. VIOXX [Suspect]
     Indication: OSTEOPOROSIS
     Dosage: 1 X DAILY
     Dates: start: 20020905, end: 20040905
  3. PREMARIN [Concomitant]

REACTIONS (1)
  - MYOCARDIAL INFARCTION [None]
